FAERS Safety Report 7904903-2 (Version None)
Quarter: 2011Q4

REPORT INFORMATION
  Report Type: 
  Country: None (occurrence: None)
  Receive Date: 20111109
  Receipt Date: 20111031
  Transmission Date: 20120403
  Serious: Yes (Hospitalization)
  Sender: FDA-Public Use
  Company Number: PHHY2011FR96891

PATIENT
  Sex: Female

DRUGS (5)
  1. VOLTAREN [Suspect]
     Indication: ARTHRALGIA
     Dates: start: 20110616
  2. LOVENOX [Concomitant]
     Indication: THROMBOSIS PROPHYLAXIS
  3. LEXOMIL [Concomitant]
  4. TRAMADOL HCL [Concomitant]
  5. CANDESARTAN CILEXETIL AND HYDROCHLOROTHIAZIDE [Concomitant]
     Dosage: 8/12.5 MG QD

REACTIONS (12)
  - ENTEROBACTER INFECTION [None]
  - OEDEMA PERIPHERAL [None]
  - CONDITION AGGRAVATED [None]
  - ERYTHEMA [None]
  - DERMO-HYPODERMITIS [None]
  - OSTEOLYSIS [None]
  - ARTHRITIS BACTERIAL [None]
  - INFECTION [None]
  - MORGANELLA INFECTION [None]
  - AGRANULOCYTOSIS [None]
  - ARTHRALGIA [None]
  - PAIN IN EXTREMITY [None]
